FAERS Safety Report 9927453 (Version 2)
Quarter: 2014Q1

REPORT INFORMATION
  Report Type: Report from Study
  Country: NL (occurrence: NL)
  Receive Date: 20140227
  Receipt Date: 20140307
  Transmission Date: 20141002
  Serious: Yes (Hospitalization)
  Sender: FDA-Public Use
  Company Number: PHHO2014NL002800

PATIENT
  Sex: 0

DRUGS (3)
  1. MYCOPHENOLIC ACID [Suspect]
     Indication: GRAFT VERSUS HOST DISEASE
     Dosage: 2160 MG, UNK
     Route: 048
     Dates: start: 20130219, end: 20140218
  2. PREDNISOLONE [Suspect]
     Indication: GRAFT VERSUS HOST DISEASE
     Dosage: 30 MG, UNK
     Route: 048
  3. SANDIMMUN [Suspect]
     Indication: GRAFT VERSUS HOST DISEASE
     Dosage: 550 MG, UNK
     Route: 048
     Dates: start: 20130216

REACTIONS (3)
  - Weight decreased [Not Recovered/Not Resolved]
  - Malaise [Not Recovered/Not Resolved]
  - Vomiting [Not Recovered/Not Resolved]
